FAERS Safety Report 6838349-5 (Version None)
Quarter: 2010Q3

REPORT INFORMATION
  Report Type: 
  Country: None (occurrence: None)
  Receive Date: 20100713
  Receipt Date: 20070608
  Transmission Date: 20110219
  Serious: Yes (Other)
  Sender: FDA-Public Use
  Company Number: US-PFIZER INC-2007048270

PATIENT
  Age: 82 Year
  Sex: Male

DRUGS (14)
  1. CHANTIX [Suspect]
     Indication: EX-TOBACCO USER
     Dates: start: 20070101, end: 20070101
  2. PLAVIX [Concomitant]
  3. COZAAR [Concomitant]
  4. CILOSTAZOL [Concomitant]
  5. POTASSIUM CHLORIDE [Concomitant]
  6. FUROSEMIDE [Concomitant]
  7. METOPROLOL [Concomitant]
  8. NIFEDICAL [Concomitant]
  9. CITALOPRAM HYDROBROMIDE [Concomitant]
  10. ACETYLSALICYLIC ACID [Concomitant]
  11. PROTONIX [Concomitant]
  12. GABAPENTIN [Concomitant]
     Indication: PAIN
  13. VYTORIN [Concomitant]
     Dosage: 10/20,ONCE DAILY
  14. OPHTHALMOLOGICALS [Concomitant]
     Indication: GLAUCOMA

REACTIONS (1)
  - HALLUCINATION [None]
